FAERS Safety Report 23319833 (Version 3)
Quarter: 2024Q1

REPORT INFORMATION
  Report Type: Spontaneous
  Country: US (occurrence: None)
  Receive Date: 20231220
  Receipt Date: 20240221
  Transmission Date: 20240410
  Serious: Yes (Other)
  Sender: FDA-Public Use
  Company Number: US-ROCHE-3473106

PATIENT
  Sex: Male

DRUGS (1)
  1. VABYSMO [Suspect]
     Active Substance: FARICIMAB\FARICIMAB-SVOA
     Indication: Neovascular age-related macular degeneration
     Route: 065

REACTIONS (12)
  - Retinal occlusive vasculitis [Unknown]
  - Keratic precipitates [Unknown]
  - Uveitis [Unknown]
  - Herpes virus infection [Unknown]
  - Intraocular pressure increased [Unknown]
  - Ocular vasculitis [Unknown]
  - Arterial occlusive disease [Unknown]
  - Miosis [Unknown]
  - Cataract [Unknown]
  - Eye disorder [Unknown]
  - Visual acuity reduced [Unknown]
  - Optic nerve disorder [Unknown]
